FAERS Safety Report 7608044-3 (Version None)
Quarter: 2011Q3

REPORT INFORMATION
  Report Type: 
  Country: None (occurrence: None)
  Receive Date: 20110714
  Receipt Date: 20110706
  Transmission Date: 20111222
  Serious: Yes (Hospitalization)
  Sender: FDA-Public Use
  Company Number: US-TEVA-289422USA

PATIENT
  Age: 65 Year
  Sex: Female

DRUGS (4)
  1. CISPLATIN [Suspect]
     Indication: ANAL CANCER
     Dates: start: 20110509, end: 20110613
  2. FUROSEMIDE [Suspect]
  3. FLUOROURACIL [Suspect]
     Indication: ANAL CANCER
     Dates: start: 20110509, end: 20110617
  4. CETUXIMAB [Suspect]
     Indication: ANAL CANCER
     Dates: start: 20110509

REACTIONS (3)
  - DIARRHOEA [None]
  - DEHYDRATION [None]
  - NAUSEA [None]
